FAERS Safety Report 4638278-1 (Version None)
Quarter: 2005Q2

REPORT INFORMATION
  Report Type: 
  Country: None (occurrence: None)
  Receive Date: 20050418
  Receipt Date: 20050405
  Transmission Date: 20051028
  Serious: Yes (Hospitalization, Other)
  Sender: FDA-Public Use
  Company Number: 200413450BCC

PATIENT
  Age: 31 Year
  Sex: Male
  Weight: 102.0593 kg

DRUGS (2)
  1. ALEVE (CAPLET) [Suspect]
     Indication: MIGRAINE
     Dosage: 220 MG, PRN, ORAL
     Route: 048
  2. ADVIL [Suspect]
     Indication: MIGRAINE
     Dosage: PRN, ORAL
     Route: 048

REACTIONS (14)
  - ACTIVATED PARTIAL THROMBOPLASTIN TIME SHORTENED [None]
  - ANAEMIA [None]
  - ANXIETY [None]
  - BLOOD ALBUMIN DECREASED [None]
  - BLOOD BILIRUBIN DECREASED [None]
  - BLOOD CALCIUM DECREASED [None]
  - DIARRHOEA [None]
  - DUODENAL ULCER [None]
  - GASTROINTESTINAL HAEMORRHAGE [None]
  - INTERNATIONAL NORMALISED RATIO DECREASED [None]
  - PROTEIN TOTAL DECREASED [None]
  - TACHYCARDIA [None]
  - TRANSFUSION REACTION [None]
  - WHITE BLOOD CELL COUNT INCREASED [None]
